FAERS Safety Report 5545982-X (Version None)
Quarter: 2007Q4

REPORT INFORMATION
  Report Type: 
  Country: None (occurrence: None)
  Receive Date: 20071211
  Receipt Date: 20070202
  Transmission Date: 20080405
  Serious: No
  Sender: FDA-Public Use
  Company Number: US-AMGEN-KDL209637

PATIENT
  Sex: Female
  Weight: 38.6 kg

DRUGS (2)
  1. ENBREL [Suspect]
     Indication: RHEUMATOID ARTHRITIS
     Route: 058
     Dates: start: 20030101
  2. ARAVA [Concomitant]
     Dates: end: 20061001

REACTIONS (3)
  - ALOPECIA [None]
  - GROWTH RETARDATION [None]
  - HYPERTHYROIDISM [None]
